FAERS Safety Report 8447978-7 (Version None)
Quarter: 2012Q2

REPORT INFORMATION
  Report Type: 
  Country: None (occurrence: None)
  Receive Date: 20120619
  Receipt Date: 20120612
  Transmission Date: 20120825
  Serious: No
  Sender: FDA-Public Use
  Company Number: US-B.I. PHARMACEUTICALS,INC./RIDGEFIELD-2012-BP-13561BP

PATIENT
  Sex: Female

DRUGS (11)
  1. APRAZOLAM [Concomitant]
     Indication: ANXIETY
     Dosage: 0.25 MG
     Route: 048
     Dates: start: 20110301
  2. RAMIPRIL [Concomitant]
     Indication: BLOOD PRESSURE ABNORMAL
     Dosage: 20 MG
     Route: 048
     Dates: start: 20000101
  3. ZETIA [Concomitant]
     Indication: BLOOD CHOLESTEROL
     Dosage: 10 MG
     Route: 048
     Dates: start: 20070101
  4. SPIRIVA [Suspect]
     Indication: EMPHYSEMA
     Dosage: 18 MCG
     Route: 055
     Dates: start: 20110601
  5. ALENDRONATE SODIUM [Concomitant]
     Indication: BONE DISORDER
     Dosage: 70 MG
     Route: 048
     Dates: start: 20000101
  6. PROAIR HFA [Concomitant]
     Indication: EMPHYSEMA
     Dosage: 2 PUF
     Route: 055
     Dates: start: 20110601
  7. SPIRIVA [Suspect]
     Route: 048
     Dates: start: 20120611, end: 20120611
  8. AMILODIPINE [Concomitant]
     Indication: BLOOD PRESSURE ABNORMAL
     Dosage: 5 MG
     Route: 048
     Dates: start: 20110101
  9. LUMIGAN [Concomitant]
     Indication: GLAUCOMA
     Dates: start: 20000101
  10. LEVOBUNOLOL HCL [Concomitant]
     Indication: GLAUCOMA
     Dates: start: 20070101
  11. WELCHOL [Concomitant]
     Indication: BLOOD CHOLESTEROL
     Dosage: 1250 MG
     Route: 048
     Dates: start: 20120301

REACTIONS (3)
  - BLOOD PRESSURE INCREASED [None]
  - BLOOD CHOLESTEROL ABNORMAL [None]
  - INCORRECT ROUTE OF DRUG ADMINISTRATION [None]
